FAERS Safety Report 6664126-4 (Version None)
Quarter: 2010Q2

REPORT INFORMATION
  Report Type: 
  Country: None (occurrence: None)
  Receive Date: 20100401
  Receipt Date: 20100324
  Transmission Date: 20101027
  Serious: Yes (Other)
  Sender: FDA-Public Use
  Company Number: B0639801A

PATIENT
  Sex: Female

DRUGS (5)
  1. HYCAMTIN [Suspect]
     Route: 042
     Dates: start: 20091123
  2. ZOPHREN [Suspect]
     Route: 042
     Dates: start: 20091123
  3. HYZAAR [Suspect]
     Route: 048
     Dates: start: 20000101
  4. OMEPRAZOLE [Suspect]
     Route: 048
  5. LIPANTHYL [Suspect]
     Route: 048

REACTIONS (9)
  - ARTERIAL DISORDER [None]
  - DISABILITY [None]
  - DRY SKIN [None]
  - PAIN [None]
  - PALLOR [None]
  - PERIPHERAL COLDNESS [None]
  - SCLERODERMA [None]
  - SKIN CHAPPED [None]
  - SKIN ULCER [None]
